FAERS Safety Report 21433123 (Version 1)
Quarter: 2022Q4

REPORT INFORMATION
  Report Type: Spontaneous
  Country: US (occurrence: US)
  Receive Date: 20221010
  Receipt Date: 20221010
  Transmission Date: 20230113
  Serious: Yes (Hospitalization, Other)
  Sender: FDA-Public Use
  Company Number: US-AUROBINDO-AUR-APL-2022-040939

PATIENT
  Age: 85 Year
  Sex: Female

DRUGS (4)
  1. BUPIVACAINE HYDROCHLORIDE [Suspect]
     Active Substance: BUPIVACAINE HYDROCHLORIDE
     Indication: Myofascial pain syndrome
     Dosage: 0.25 PERCENT (8 ML OF BUPIVACAINE 0.25% AND 20 MG OF METHYLPREDNISOLONE)
  2. BUPIVACAINE HYDROCHLORIDE [Suspect]
     Active Substance: BUPIVACAINE HYDROCHLORIDE
     Dosage: 0.5 MILLILITER
  3. METHYLPREDNISOLONE [Suspect]
     Active Substance: METHYLPREDNISOLONE
     Indication: Myofascial pain syndrome
     Dosage: 20 MILLIGRAM (8 ML OF BUPIVACAINE 0.25% AND 20 MG OF METHYLPREDNISOLONE)
  4. TRIAMTERENE AND HYDROCHLOROTHIAZIDE [Concomitant]
     Active Substance: HYDROCHLOROTHIAZIDE\TRIAMTERENE
     Indication: Hypertension
     Dosage: UNK
     Route: 065

REACTIONS (1)
  - Stress cardiomyopathy [Unknown]
